FAERS Safety Report 9153947 (Version 1)
Quarter: 2013Q1

REPORT INFORMATION
  Report Type: Spontaneous
  Country: US (occurrence: None)
  Receive Date: 20130308
  Receipt Date: 20130308
  Transmission Date: 20140127
  Serious: Yes (Other)
  Sender: FDA-Public Use
  Company Number: None

PATIENT
  Sex: Female
  Weight: 70.31 kg

DRUGS (1)
  1. VENLAFAXINE [Suspect]
     Indication: DEPRESSION
     Dosage: UP TO 2 TABS, PRN, PO
     Route: 048

REACTIONS (8)
  - Mood swings [None]
  - Palpitations [None]
  - Hypotension [None]
  - Insomnia [None]
  - Weight decreased [None]
  - Nervousness [None]
  - Skin exfoliation [None]
  - Product substitution issue [None]
